FAERS Safety Report 14119698 (Version 1)
Quarter: 2017Q4

REPORT INFORMATION
  Report Type: Spontaneous
  Country: US (occurrence: None)
  Receive Date: 20171024
  Receipt Date: 20171024
  Transmission Date: 20180321
  Serious: No
  Sender: FDA-Public Use
  Company Number: None

PATIENT
  Age: 51 Year
  Sex: Male

DRUGS (1)
  1. NEVIRAPINE. [Suspect]
     Active Substance: NEVIRAPINE
     Route: 048

REACTIONS (3)
  - Gastric dilatation [None]
  - Flatulence [None]
  - Abdominal discomfort [None]

NARRATIVE: CASE EVENT DATE: 20171024
